FAERS Safety Report 4888463-9 (Version None)
Quarter: 2005Q4

REPORT INFORMATION
  Report Type: 
  Country: None (occurrence: None)
  Receive Date: 20051207
  Receipt Date: 20050801
  Transmission Date: 20060501
  Serious: Yes (Other)
  Sender: FDA-Public Use
  Company Number: 2005095466

PATIENT
  Age: 76 Year
  Sex: Male

DRUGS (8)
  1. VIAGRA [Suspect]
     Indication: ERECTILE DYSFUNCTION
     Dosage: 50 MG (50 MG), ORAL
     Route: 048
     Dates: start: 20050626
  2. PHENYLEPHRINE (PHENYLEPHRINE) [Suspect]
     Indication: ILL-DEFINED DISORDER
     Dosage: PARENTERAL
     Route: 051
  3. CARDIZEM [Concomitant]
  4. SYNTHROID [Concomitant]
  5. ASPIRIN [Concomitant]
  6. PREDNISONE [Concomitant]
  7. LAMISIL [Concomitant]
  8. NIACIN [Concomitant]

REACTIONS (2)
  - PRIAPISM [None]
  - VENTRICULAR EXTRASYSTOLES [None]
